FAERS Safety Report 14937799 (Version 1)
Quarter: 2018Q2

REPORT INFORMATION
  Report Type: Spontaneous
  Country: CA (occurrence: CA)
  Receive Date: 20180525
  Receipt Date: 20180525
  Transmission Date: 20180711
  Serious: Yes (Hospitalization, Other)
  Sender: FDA-Public Use
  Company Number: CA-ROCHE-2128542

PATIENT
  Age: 48 Year
  Sex: Female
  Weight: 106 kg

DRUGS (20)
  1. TRASTUZUMAB. [Suspect]
     Active Substance: TRASTUZUMAB
     Dosage: THERAPY DURATION: 1 DAY
     Route: 065
  2. BETAMETHASONE. [Suspect]
     Active Substance: BETAMETHASONE
     Indication: TARDIVE DYSKINESIA
     Route: 065
  3. ENOXAPARIN [Suspect]
     Active Substance: ENOXAPARIN
     Indication: TARDIVE DYSKINESIA
     Route: 058
  4. METOCLOPRAMIDE. [Suspect]
     Active Substance: METOCLOPRAMIDE
     Indication: TARDIVE DYSKINESIA
     Route: 048
  5. PACLITAXEL. [Suspect]
     Active Substance: PACLITAXEL
     Dosage: THERAPY DURATION: 1 DAY
     Route: 042
  6. TYLENOL WITH CODEINE [Suspect]
     Active Substance: ACETAMINOPHEN\CODEINE PHOSPHATE
     Indication: TARDIVE DYSKINESIA
     Route: 065
  7. DEXAMETHASONE. [Suspect]
     Active Substance: DEXAMETHASONE
     Indication: SUPPORTIVE CARE
     Route: 048
  8. DOXORUBICIN [Suspect]
     Active Substance: DOXORUBICIN
     Indication: BREAST CANCER
     Route: 042
  9. LEVOFLOXACIN. [Suspect]
     Active Substance: LEVOFLOXACIN
     Indication: TARDIVE DYSKINESIA
     Route: 048
  10. FILGRASTIM [Suspect]
     Active Substance: FILGRASTIM
     Indication: SUPPORTIVE CARE
     Route: 065
  11. PROCYTOX [Suspect]
     Active Substance: CYCLOPHOSPHAMIDE
     Indication: BREAST CANCER
     Dosage: 2000MG/VIAL
     Route: 042
  12. APREPITANT. [Suspect]
     Active Substance: APREPITANT
     Indication: SUPPORTIVE CARE
     Route: 048
  13. PACLITAXEL. [Suspect]
     Active Substance: PACLITAXEL
     Indication: BREAST CANCER
     Dosage: THERAPY DURATION: 15 DAYS
     Route: 042
  14. TRASTUZUMAB. [Suspect]
     Active Substance: TRASTUZUMAB
     Indication: TARDIVE DYSKINESIA
     Dosage: THERAPY DURATION: 1 DAY
     Route: 065
  15. APREPITANT. [Suspect]
     Active Substance: APREPITANT
     Route: 048
  16. PACLITAXEL. [Suspect]
     Active Substance: PACLITAXEL
     Route: 042
  17. RANITIDINE. [Suspect]
     Active Substance: RANITIDINE
     Indication: TARDIVE DYSKINESIA
     Route: 048
  18. LORAZEPAM. [Suspect]
     Active Substance: LORAZEPAM
     Indication: TARDIVE DYSKINESIA
     Route: 048
  19. ONDANSETRON [Suspect]
     Active Substance: ONDANSETRON
     Indication: SUPPORTIVE CARE
     Dosage: THERAPY DURATION: 1 DAY
     Route: 048
  20. PEGFILGRASTIM [Suspect]
     Active Substance: PEGFILGRASTIM
     Indication: SUPPORTIVE CARE
     Dosage: THERAPY DURATION: 1 DAY
     Route: 058

REACTIONS (11)
  - Pyrexia [Recovered/Resolved]
  - Atelectasis [Recovered/Resolved]
  - Hypoxia [Recovered/Resolved]
  - Dyspnoea [Recovered/Resolved]
  - Off label use [Unknown]
  - Cough [Recovered/Resolved]
  - Gastrointestinal disorder [Recovered/Resolved]
  - Rash [Recovered/Resolved]
  - Computerised tomogram thorax abnormal [Recovered/Resolved]
  - Fatigue [Recovered/Resolved]
  - Nausea [Recovered/Resolved]
